FAERS Safety Report 19964409 (Version 1)
Quarter: 2021Q4

REPORT INFORMATION
  Report Type: Spontaneous
  Country: US (occurrence: US)
  Receive Date: 20211014
  Receipt Date: 20211014
  Transmission Date: 20220303
  Serious: Yes (Hospitalization)
  Sender: FDA-Public Use
  Company Number: None

PATIENT
  Age: 66 Year
  Sex: Female

DRUGS (12)
  1. ACTEMRA [Suspect]
     Active Substance: TOCILIZUMAB
     Indication: Rheumatoid arthritis
     Route: 058
     Dates: start: 20210807
  2. CALCIUM [Concomitant]
     Active Substance: CALCIUM
  3. ERGOCALCIFER [Concomitant]
  4. FOLIC ACID [Concomitant]
     Active Substance: FOLIC ACID
  5. ACETAMINOPHEN\HYDROCODONE [Concomitant]
     Active Substance: ACETAMINOPHEN\HYDROCODONE
  6. LYRICA [Concomitant]
     Active Substance: PREGABALIN
  7. METHOCARBAMOL [Concomitant]
     Active Substance: METHOCARBAMOL
  8. METOPROL TAR [Concomitant]
  9. NIFEDIPINE [Concomitant]
     Active Substance: NIFEDIPINE
  10. PREDNISONE [Concomitant]
     Active Substance: PREDNISONE
  11. PROLIA [Concomitant]
     Active Substance: DENOSUMAB
  12. SULFASALAZINE DELAYED-RELEASE [Concomitant]
     Active Substance: SULFASALAZINE

REACTIONS (1)
  - Vertigo [None]

NARRATIVE: CASE EVENT DATE: 20211006
